FAERS Safety Report 9601313 (Version 3)
Quarter: 2013Q4

REPORT INFORMATION
  Report Type: Report from Study
  Country: GB (occurrence: GB)
  Receive Date: 20131007
  Receipt Date: 20131107
  Transmission Date: 20140711
  Serious: Yes (Death)
  Sender: FDA-Public Use
  Company Number: GB-AMGEN-GBRCT2012017829

PATIENT
  Age: 69 Year
  Sex: Male
  Weight: 85 kg

DRUGS (11)
  1. ETANERCEPT [Suspect]
     Indication: RHEUMATOID ARTHRITIS
     Dosage: 25 MG, 2 TIMES/WK
     Route: 065
     Dates: start: 20050228, end: 20061018
  2. METHOTREXATE [Concomitant]
     Dosage: UNK
     Dates: start: 20060117
  3. FOLIC ACID [Concomitant]
     Dosage: 5 MG, UNK
  4. FUROSEMIDE [Concomitant]
     Dosage: 20 MG, UNK
  5. GABAPENTIN [Concomitant]
     Dosage: 600 MG, UNK
  6. OMEPRAZOLE [Concomitant]
     Dosage: 20 MG, UNK
  7. PARACETAMOL [Concomitant]
     Dosage: 500 MG, UNK
  8. WARFARIN [Concomitant]
     Dosage: UNK
  9. TRAMADOL [Concomitant]
     Dosage: UNK
  10. ADCAL D3 [Concomitant]
     Dosage: UNK
  11. PREDNISOLONE [Concomitant]
     Dosage: UNK

REACTIONS (2)
  - Rheumatoid arthritis [Fatal]
  - Pneumonia [Fatal]
